FAERS Safety Report 13536067 (Version 1)
Quarter: 2017Q2

REPORT INFORMATION
  Report Type: Spontaneous
  Country: US (occurrence: US)
  Receive Date: 20170511
  Receipt Date: 20170511
  Transmission Date: 20170830
  Serious: No
  Sender: FDA-Public Use
  Company Number: US-GLENMARK PHARMACEUTICALS-2016GMK023137

PATIENT

DRUGS (4)
  1. TOPIRAMATE TABLETS 100MG [Suspect]
     Active Substance: TOPIRAMATE
     Indication: WEIGHT DECREASED
     Dosage: 1 DF, QD
     Route: 048
     Dates: start: 201603
  2. TOPIRAMATE TABLETS 100MG [Suspect]
     Active Substance: TOPIRAMATE
     Dosage: TOTAL DAILY DOSE OF 200 MG
     Route: 048
     Dates: start: 201604
  3. OMEPRAZOLE. [Concomitant]
     Active Substance: OMEPRAZOLE
     Indication: GASTROOESOPHAGEAL REFLUX DISEASE
     Dosage: 20 MG, UNK
     Route: 048
  4. TOPIRAMATE TABLETS 100MG [Suspect]
     Active Substance: TOPIRAMATE
     Dosage: 100 MG, OD
     Route: 048
     Dates: start: 20160525, end: 201606

REACTIONS (4)
  - Burning sensation [Recovered/Resolved]
  - Muscle contractions involuntary [Not Recovered/Not Resolved]
  - Product use in unapproved indication [Unknown]
  - Muscle twitching [Not Recovered/Not Resolved]

NARRATIVE: CASE EVENT DATE: 20160513
